FAERS Safety Report 23258534 (Version 1)
Quarter: 2023Q4

REPORT INFORMATION
  Report Type: Spontaneous
  Country: DZ (occurrence: DZ)
  Receive Date: 20231204
  Receipt Date: 20231204
  Transmission Date: 20240110
  Serious: Yes (Death, Other)
  Sender: FDA-Public Use
  Company Number: DZ-SA-SAC20231129001255

PATIENT
  Age: 12 Month
  Sex: Female

DRUGS (1)
  1. MYOZYME [Suspect]
     Active Substance: ALGLUCOSIDASE ALFA
     Indication: Glycogen storage disease type II
     Dosage: 125 IU; DATE OF START OF THE TREATMENT: 13H END DATE OF THE TREATMENT / DURATION: 18H
     Route: 042

REACTIONS (2)
  - Cardio-respiratory arrest [Fatal]
  - Apnoea [Fatal]

NARRATIVE: CASE EVENT DATE: 20231118
